FAERS Safety Report 4622338-5 (Version None)
Quarter: 2005Q1

REPORT INFORMATION
  Report Type: 
  Country: None (occurrence: None)
  Receive Date: 20050324
  Receipt Date: 20050324
  Transmission Date: 20050727
  Serious: Yes (Disabling)
  Sender: FDA-Public Use
  Company Number: None

PATIENT
  Age: 52 Year
  Sex: Male
  Weight: 158.759 kg

DRUGS (2)
  1. ZICAM [Suspect]
     Indication: AGEUSIA
     Dosage: ONCE
     Dates: start: 20050303, end: 20050303
  2. ZICAM [Suspect]
     Indication: ANOSMIA
     Dosage: ONCE
     Dates: start: 20050303, end: 20050303

REACTIONS (3)
  - AGEUSIA [None]
  - ANOSMIA [None]
  - NASAL DISCOMFORT [None]
